FAERS Safety Report 18625130 (Version 2)
Quarter: 2021Q1

REPORT INFORMATION
  Report Type: Spontaneous
  Country: US (occurrence: US)
  Receive Date: 20201217
  Receipt Date: 20210218
  Transmission Date: 20210419
  Serious: Yes (Death, Hospitalization)
  Sender: FDA-Public Use
  Company Number: US-ABBVIE-20K-163-3692228-00

PATIENT
  Sex: Female

DRUGS (10)
  1. TRIDIONE [Suspect]
     Active Substance: TRIMETHADIONE
     Indication: SEIZURE
  2. MYSOLINE [Suspect]
     Active Substance: PRIMIDONE
     Indication: EPILEPSY
     Route: 065
  3. MYSOLINE [Suspect]
     Active Substance: PRIMIDONE
     Indication: SEIZURE
  4. DILANTIN [Suspect]
     Active Substance: PHENYTOIN
     Indication: EPILEPSY
     Route: 065
  5. DILANTIN [Suspect]
     Active Substance: PHENYTOIN
     Indication: SEIZURE
  6. PEGANONE [Suspect]
     Active Substance: ETHOTOIN
     Indication: SEIZURE
  7. PHENOBARBITAL. [Suspect]
     Active Substance: PHENOBARBITAL
     Indication: SEIZURE
  8. TRIDIONE [Suspect]
     Active Substance: TRIMETHADIONE
     Indication: EPILEPSY
     Route: 048
  9. PHENOBARBITAL. [Suspect]
     Active Substance: PHENOBARBITAL
     Indication: EPILEPSY
     Route: 065
  10. PEGANONE [Suspect]
     Active Substance: ETHOTOIN
     Indication: EPILEPSY
     Route: 065

REACTIONS (8)
  - Cardiac disorder [Unknown]
  - Infection [Unknown]
  - Drug ineffective [Unknown]
  - Hospitalisation [Unknown]
  - Transient ischaemic attack [Fatal]
  - Cerebrovascular accident [Fatal]
  - Drug hypersensitivity [Unknown]
  - Liver disorder [Unknown]
